FAERS Safety Report 7251104-X (Version None)
Quarter: 2011Q1

REPORT INFORMATION
  Report Type: 
  Country: None (occurrence: None)
  Receive Date: 20110128
  Receipt Date: 20110117
  Transmission Date: 20110831
  Serious: Yes (Hospitalization)
  Sender: FDA-Public Use
  Company Number: US-JNJCH-2011001555

PATIENT
  Age: 57 Year
  Sex: Female
  Weight: 72.6 kg

DRUGS (1)
  1. LISTERINE VANILLA MINT [Suspect]
     Indication: DENTAL DISORDER PROPHYLAXIS
     Dosage: TEXT:SMALL CUPFUL TWICE DAILY
     Route: 048

REACTIONS (5)
  - PRODUCT QUALITY ISSUE [None]
  - UPPER RESPIRATORY TRACT INFECTION [None]
  - LARYNGITIS [None]
  - MALAISE [None]
  - PHARYNGITIS [None]
